FAERS Safety Report 4641902-0 (Version None)
Quarter: 2005Q2

REPORT INFORMATION
  Report Type: 
  Country: None (occurrence: None)
  Receive Date: 20050420
  Receipt Date: 20050406
  Transmission Date: 20051028
  Serious: Yes (Other)
  Sender: FDA-Public Use
  Company Number: USA050495014

PATIENT
  Age: 58 Year
  Sex: Male
  Weight: 82 kg

DRUGS (3)
  1. HUMALOG [Suspect]
     Dosage: 42 U DAY
     Dates: start: 20010101
  2. HUMULIN N [Suspect]
     Dosage: 10 U/2 DAY
  3. HUMULIN R [Suspect]

REACTIONS (3)
  - BLOOD GLUCOSE FLUCTUATION [None]
  - GLYCOSYLATED HAEMOGLOBIN INCREASED [None]
  - LIP AND/OR ORAL CAVITY CANCER [None]
